FAERS Safety Report 20943249 (Version 1)
Quarter: 2022Q2

REPORT INFORMATION
  Report Type: Spontaneous
  Country: US (occurrence: None)
  Receive Date: 20220609
  Receipt Date: 20220609
  Transmission Date: 20220720
  Serious: No
  Sender: FDA-Public Use
  Company Number: None

PATIENT
  Sex: Female
  Weight: 91.17 kg

DRUGS (7)
  1. LETROZOLE [Suspect]
     Active Substance: LETROZOLE
     Indication: Breast cancer female
     Dosage: FREQUENCY : DAILY;?
     Route: 048
  2. CALCIUM + VITAMIN D3 600 [Concomitant]
  3. LISINOPRIL [Concomitant]
     Active Substance: LISINOPRIL
  4. METOPROLOL SUCCINATE [Concomitant]
     Active Substance: METOPROLOL SUCCINATE
  5. SIMVASTATIN [Concomitant]
     Active Substance: SIMVASTATIN
  6. TRAMADOL HCL ER [Concomitant]
  7. VERZENIO [Concomitant]
     Active Substance: ABEMACICLIB

REACTIONS (4)
  - Dyspnoea [None]
  - Pulmonary pain [None]
  - Pneumonia [None]
  - Pleurisy [None]
